FAERS Safety Report 4953866-0 (Version None)
Quarter: 2006Q1

REPORT INFORMATION
  Report Type: 
  Country: None (occurrence: None)
  Receive Date: 20060327
  Receipt Date: 20060206
  Transmission Date: 20060701
  Serious: Yes (Death)
  Sender: FDA-Public Use
  Company Number: 2006AP00649

PATIENT
  Age: 73 Year
  Sex: Male

DRUGS (9)
  1. CRESTOR [Suspect]
     Indication: HYPERCHOLESTEROLAEMIA
     Route: 048
     Dates: start: 20051101, end: 20060125
  2. MAINTATE [Concomitant]
     Route: 048
     Dates: start: 20050101, end: 20060124
  3. ALLOPURINOL [Concomitant]
     Route: 048
     Dates: start: 20050101
  4. COVERSYL [Concomitant]
     Route: 048
     Dates: start: 20050101
  5. NIVADIL [Concomitant]
     Route: 048
     Dates: start: 20050101
  6. MEXITIL [Concomitant]
     Route: 048
     Dates: start: 20050101
  7. POLARAMINE [Concomitant]
     Route: 048
     Dates: start: 20050101
  8. ASPIRIN [Concomitant]
     Route: 048
     Dates: start: 20050101
  9. GASTER D [Concomitant]
     Route: 048
     Dates: start: 20050101

REACTIONS (10)
  - ANAEMIA [None]
  - ANOREXIA [None]
  - CARDIAC FAILURE [None]
  - CARDIOMEGALY [None]
  - GASTROINTESTINAL HAEMORRHAGE [None]
  - HEPATIC CYST [None]
  - LYMPHADENOPATHY [None]
  - MALAISE [None]
  - MYELODYSPLASTIC SYNDROME [None]
  - PULMONARY ARTERY DILATATION [None]
